FAERS Safety Report 6287752-3 (Version None)
Quarter: 2009Q3

REPORT INFORMATION
  Report Type: 
  Country: None (occurrence: None)
  Receive Date: 20090727
  Receipt Date: 20090727
  Transmission Date: 20100115
  Serious: No
  Sender: FDA-Public Use
  Company Number: None

PATIENT
  Age: 53 Year
  Sex: Female
  Weight: 65.7716 kg

DRUGS (1)
  1. ZICAM COLD REMEDY SWABS ZINCAM GLUCONICUM 2X MATRIX INITIATIVES, INC [Suspect]
     Indication: NASOPHARYNGITIS
     Dosage: ONE SWAB EVERY FOUR HOURS NASAL
     Route: 045
     Dates: start: 20070601, end: 20070615

REACTIONS (1)
  - ANOSMIA [None]
